FAERS Safety Report 9706838 (Version 2)
Quarter: 2013Q4

REPORT INFORMATION
  Report Type: Spontaneous
  Country: JP (occurrence: JP)
  Receive Date: 20131125
  Receipt Date: 20131211
  Transmission Date: 20140711
  Serious: No
  Sender: FDA-Public Use
  Company Number: JP-ELI_LILLY_AND_COMPANY-JP201311005684

PATIENT
  Age: 45 Year
  Sex: Female

DRUGS (2)
  1. CYMBALTA [Suspect]
     Indication: DIABETIC NEUROPATHY
     Dosage: 20 MG, QD
     Route: 048
     Dates: start: 20130905, end: 20131114
  2. EXENATIDE [Concomitant]
     Dosage: 2 MG, WEEKLY (1/W)
     Route: 058
     Dates: start: 20130905

REACTIONS (1)
  - Hepatic function abnormal [Recovering/Resolving]
